FAERS Safety Report 8007110-0 (Version None)
Quarter: 2011Q4

REPORT INFORMATION
  Report Type: 
  Country: None (occurrence: None)
  Receive Date: 20111227
  Receipt Date: 20111221
  Transmission Date: 20120403
  Serious: Yes (Other)
  Sender: FDA-Public Use
  Company Number: BR-PFIZER INC-2011311083

PATIENT
  Sex: Female

DRUGS (1)
  1. VARENICLINE TARTRATE [Suspect]
     Indication: SMOKING CESSATION THERAPY
     Dosage: UNK
     Route: 048

REACTIONS (8)
  - HYPOPHAGIA [None]
  - TREMOR [None]
  - DEPRESSION [None]
  - WITHDRAWAL SYNDROME [None]
  - HYPERHIDROSIS [None]
  - DISSOCIATION [None]
  - ABNORMAL BEHAVIOUR [None]
  - CRYING [None]
